FAERS Safety Report 4887950-7 (Version None)
Quarter: 2006Q1

REPORT INFORMATION
  Report Type: 
  Country: None (occurrence: None)
  Receive Date: 20060123
  Receipt Date: 20051005
  Transmission Date: 20060701
  Serious: Yes (Hospitalization, Disabling, Other)
  Sender: FDA-Public Use
  Company Number: US-MERCK-0510USA03913

PATIENT
  Age: 66 Year
  Sex: Female
  Weight: 103 kg

DRUGS (10)
  1. VIOXX [Suspect]
     Indication: OSTEOARTHRITIS
     Route: 048
     Dates: start: 19990101, end: 20041001
  2. VIOXX [Suspect]
     Route: 048
  3. PROZAC [Concomitant]
     Route: 048
  4. CARDIZEM CD [Concomitant]
     Route: 048
  5. FLUOXETINE [Concomitant]
     Route: 065
  6. CLOBETASOL PROPIONATE [Concomitant]
     Route: 065
  7. SPIRONOLACTONE [Concomitant]
     Route: 065
  8. DARVOCET-N 50 [Concomitant]
     Route: 065
  9. PEPCID [Concomitant]
     Route: 065
  10. VITAMIN B (UNSPECIFIED) [Concomitant]
     Route: 065

REACTIONS (20)
  - AMNESIA [None]
  - ANAEMIA [None]
  - BLOOD CHOLESTEROL INCREASED [None]
  - CARDIOVASCULAR DISORDER [None]
  - CEREBROVASCULAR ACCIDENT [None]
  - CONVULSION [None]
  - DEEP VEIN THROMBOSIS [None]
  - DYSPNOEA [None]
  - NEUROPATHY [None]
  - NEUTROPENIA [None]
  - OEDEMA PERIPHERAL [None]
  - OSTEOARTHRITIS [None]
  - OVARIAN CANCER [None]
  - PANCREATITIS [None]
  - PLEURAL EFFUSION [None]
  - PULMONARY EMBOLISM [None]
  - ROTATOR CUFF SYNDROME [None]
  - STRESS INCONTINENCE [None]
  - TACHYCARDIA [None]
  - VAGINAL CANDIDIASIS [None]
